FAERS Safety Report 11007198 (Version 2)
Quarter: 2015Q2

REPORT INFORMATION
  Report Type: Spontaneous
  Country: RU (occurrence: RU)
  Receive Date: 20150409
  Receipt Date: 20150609
  Transmission Date: 20150821
  Serious: Yes (Life-Threatening, Hospitalization)
  Sender: FDA-Public Use
  Company Number: RU-BIOMARINAP-RU-2015-106026

PATIENT
  Age: 6 Year
  Sex: Male
  Weight: 14 kg

DRUGS (1)
  1. ALDURAZYME [Suspect]
     Active Substance: LARONIDASE
     Indication: MUCOPOLYSACCHARIDOSIS I
     Dosage: UNK, QW
     Route: 042
     Dates: start: 2011

REACTIONS (5)
  - Tonsillectomy [Recovering/Resolving]
  - Cardiac arrest [Recovering/Resolving]
  - Hypokinesia [Recovering/Resolving]
  - Speech disorder [Recovering/Resolving]
  - Apparent death [Recovering/Resolving]
